FAERS Safety Report 6745930-0 (Version None)
Quarter: 2010Q2

REPORT INFORMATION
  Report Type: 
  Country: None (occurrence: None)
  Receive Date: 20100528
  Receipt Date: 20100514
  Transmission Date: 20101027
  Serious: Yes (Hospitalization)
  Sender: FDA-Public Use
  Company Number: ES-ELI_LILLY_AND_COMPANY-ES201005003902

PATIENT
  Sex: Female
  Weight: 60 kg

DRUGS (3)
  1. FORTEO [Suspect]
     Indication: OSTEOPOROSIS
     Dosage: 20 UG, DAILY (1/D)
     Route: 058
     Dates: start: 20100304, end: 20100426
  2. CORTISONE [Concomitant]
     Indication: ADDISON'S DISEASE
     Dosage: UNK, UNK
     Route: 048
  3. LEVOTHYROXINE SODIUM [Concomitant]
     Indication: HYPOTHYROIDISM
     Dosage: UNK, UNK
     Route: 048

REACTIONS (3)
  - BILIARY TRACT DISORDER [None]
  - HEPATIC FAILURE [None]
  - LOSS OF CONSCIOUSNESS [None]
